FAERS Safety Report 18507653 (Version 1)
Quarter: 2020Q4

REPORT INFORMATION
  Report Type: Spontaneous
  Country: CN (occurrence: CN)
  Receive Date: 20201116
  Receipt Date: 20201116
  Transmission Date: 20210114
  Serious: Yes (Other)
  Sender: FDA-Public Use
  Company Number: CN-ASTRAZENECA-2020SF49485

PATIENT
  Age: 74 Year
  Sex: Female
  Weight: 64 kg

DRUGS (1)
  1. PULMICORT RESPULES [Suspect]
     Active Substance: BUDESONIDE
     Indication: SYMPTOMATIC TREATMENT
     Route: 055
     Dates: start: 20201028, end: 20201028

REACTIONS (6)
  - Dizziness [Unknown]
  - Nausea [Recovered/Resolved]
  - Cyanosis [Unknown]
  - Heart rate increased [Unknown]
  - Wheezing [Unknown]
  - Breath sounds abnormal [Unknown]

NARRATIVE: CASE EVENT DATE: 20201028
